FAERS Safety Report 10869058 (Version 1)
Quarter: 2015Q1

REPORT INFORMATION
  Report Type: Report from Study
  Country: BR (occurrence: BR)
  Receive Date: 20150225
  Receipt Date: 20150225
  Transmission Date: 20150721
  Serious: Yes (Death, Other)
  Sender: FDA-Public Use
  Company Number: ALCN2015BR001418

PATIENT
  Sex: Male

DRUGS (4)
  1. DUOTRAV BAC-FREE [Suspect]
     Active Substance: TIMOLOL\TRAVOPROST
     Dosage: 1 UNK, UNK
     Route: 047
  2. SELOZOK [Suspect]
     Active Substance: METOPROLOL SUCCINATE
     Dosage: 1 UNK, UNK
     Route: 048
  3. SIMVASTATIN. [Suspect]
     Active Substance: SIMVASTATIN
     Dosage: 1 DF, UNK
     Route: 048
  4. TRAVATAN BAC-FREE [Suspect]
     Active Substance: TRAVOPROST
     Dosage: 1 UNK, UNK
     Route: 047

REACTIONS (1)
  - Cerebrovascular accident [Fatal]
